FAERS Safety Report 4535064-8 (Version None)
Quarter: 2004Q4

REPORT INFORMATION
  Report Type: 
  Country: None (occurrence: None)
  Receive Date: 20041222
  Receipt Date: 20041210
  Transmission Date: 20050328
  Serious: Yes (Hospitalization)
  Sender: FDA-Public Use
  Company Number: CA-ROCHE-389031

PATIENT
  Age: 47 Year
  Sex: Male
  Weight: 77 kg

DRUGS (8)
  1. CAPECITABINE [Suspect]
     Dosage: GIVEN FOR 14 DAYS OF A 21 DAY CYCLE
     Route: 048
     Dates: start: 20041122
  2. BLINDED BEVACIZUMAB [Suspect]
     Route: 042
     Dates: start: 20041122
  3. OXALIPLATIN [Suspect]
     Route: 042
     Dates: start: 20041122
  4. DEXAMETHASONE [Suspect]
     Dosage: 14MG GIVEN ON 22 NOVEMBER, 8MG GIVEN FROM 23 TO 25 NOVEMBER
     Route: 065
     Dates: start: 20041122, end: 20041125
  5. ONDANSETRON [Concomitant]
     Dates: start: 20041122, end: 20041125
  6. METOCLOPRAMIDE [Concomitant]
     Dosage: TAKEN PRN
     Dates: start: 20041018
  7. GRAVOL TAB [Concomitant]
     Dosage: TAKEN PRN
     Dates: start: 20041115
  8. NEXIUM [Concomitant]
     Dates: start: 20041124, end: 20041215

REACTIONS (3)
  - BLOOD POTASSIUM INCREASED [None]
  - BLOOD SODIUM DECREASED [None]
  - HYPERGLYCAEMIA [None]
